FAERS Safety Report 15046814 (Version 3)
Quarter: 2018Q4

REPORT INFORMATION
  Report Type: Spontaneous
  Country: US (occurrence: US)
  Receive Date: 20180621
  Receipt Date: 20181217
  Transmission Date: 20190204
  Serious: Yes (Disabling, Other)
  Sender: FDA-Public Use
  Company Number: US-OTSUKA-2018_016757

PATIENT
  Sex: Male

DRUGS (5)
  1. ABILIFY [Suspect]
     Active Substance: ARIPIPRAZOLE
     Indication: MAJOR DEPRESSION
     Dosage: UNK
     Route: 065
     Dates: start: 2009, end: 2011
  2. ABILIFY [Suspect]
     Active Substance: ARIPIPRAZOLE
     Indication: DEMENTIA
  3. ABILIFY [Suspect]
     Active Substance: ARIPIPRAZOLE
     Indication: ANXIETY
  4. ABILIFY [Suspect]
     Active Substance: ARIPIPRAZOLE
     Indication: ATTENTION DEFICIT/HYPERACTIVITY DISORDER
  5. ABILIFY [Suspect]
     Active Substance: ARIPIPRAZOLE
     Indication: INSOMNIA

REACTIONS (21)
  - Compulsive sexual behaviour [Recovered/Resolved]
  - Disability [Unknown]
  - Sexually transmitted disease [Unknown]
  - Product use in unapproved indication [Unknown]
  - Gambling disorder [Recovered/Resolved]
  - Economic problem [Unknown]
  - Suicidal ideation [Recovered/Resolved]
  - Compulsive shopping [Recovered/Resolved]
  - Social problem [Unknown]
  - Suicide attempt [Recovered/Resolved]
  - Emotional distress [Unknown]
  - Pain [Unknown]
  - Bankruptcy [Unknown]
  - Homeless [Unknown]
  - Physical disability [Unknown]
  - Injury [Unknown]
  - Anhedonia [Unknown]
  - Mental impairment [Unknown]
  - Sexual dysfunction [Recovered/Resolved]
  - Compulsive hoarding [Recovered/Resolved]
  - Loss of employment [Unknown]

NARRATIVE: CASE EVENT DATE: 2009
